FAERS Safety Report 13324795 (Version 1)
Quarter: 2017Q1

REPORT INFORMATION
  Report Type: Spontaneous
  Country: US (occurrence: US)
  Receive Date: 20170310
  Receipt Date: 20170310
  Transmission Date: 20170428
  Serious: Yes (Other)
  Sender: FDA-Public Use
  Company Number: US-APOTEX-2017AP008133

PATIENT
  Age: 10 Day
  Sex: Male

DRUGS (4)
  1. CAPTOPRIL. [Suspect]
     Active Substance: CAPTOPRIL
     Indication: RENOVASCULAR HYPERTENSION
     Dosage: 0.1 MG/KG, Q8H
     Route: 065
  2. FUROSEMIDE. [Concomitant]
     Active Substance: FUROSEMIDE
     Indication: OEDEMA
     Dosage: 2 MG/KG/DOSE, BID
     Route: 065
  3. ENALAPRIL [Suspect]
     Active Substance: ENALAPRIL
     Indication: RENOVASCULAR HYPERTENSION
     Dosage: 0.1 MG/KG/D, IN TWO DIVIDED DOSES
     Route: 048
  4. HYDRALAZINE [Concomitant]
     Active Substance: HYDRALAZINE HYDROCHLORIDE
     Indication: RENOVASCULAR HYPERTENSION
     Dosage: 0.5 MG/KG, EVERY 4-6 HOURS, AS NEEDED
     Route: 065

REACTIONS (1)
  - Acute kidney injury [Recovering/Resolving]
